FAERS Safety Report 8797788 (Version 1)
Quarter: 2012Q4

REPORT INFORMATION
  Report Type: 
  Country: BR (occurrence: BR)
  Receive Date: 20120920
  Receipt Date: 20120920
  Transmission Date: 20130627
  Serious: Yes (Other)
  Sender: FDA-Public Use
  Company Number: BR-AMGEN-BRASP2012054991

PATIENT
  Age: 53 Year
  Sex: Male
  Weight: 82 kg

DRUGS (2)
  1. ENBREL [Suspect]
     Indication: PSORIASIS
     Dosage: 50 mg, each 6 days
     Route: 058
     Dates: start: 200807, end: 201201
  2. ENBREL [Suspect]
     Dosage: 50 mg, each 5 days
     Route: 058
     Dates: start: 200807

REACTIONS (5)
  - Drug ineffective [Unknown]
  - Psoriatic arthropathy [Unknown]
  - Back pain [Recovered/Resolved]
  - Arthralgia [Recovered/Resolved]
  - Psoriasis [Recovered/Resolved]
